FAERS Safety Report 6654631-9 (Version None)
Quarter: 2010Q1

REPORT INFORMATION
  Report Type: 
  Country: None (occurrence: None)
  Receive Date: 20100326
  Receipt Date: 20100318
  Transmission Date: 20100710
  Serious: Yes (Hospitalization)
  Sender: FDA-Public Use
  Company Number: GB-GENENTECH-294696

PATIENT
  Sex: Male
  Weight: 77.5 kg

DRUGS (21)
  1. RITUXIMAB [Suspect]
     Indication: DIFFUSE LARGE B-CELL LYMPHOMA
     Dosage: 100 MG, QAM
     Route: 042
     Dates: start: 20091028, end: 20091028
  2. NEULASTA [Suspect]
     Indication: DIFFUSE LARGE B-CELL LYMPHOMA
     Dosage: 6 MG, UNK
     Route: 058
     Dates: start: 20091107, end: 20091107
  3. PREDNISOLONE [Suspect]
     Indication: DIFFUSE LARGE B-CELL LYMPHOMA
     Dosage: 100 MG, QAM
     Route: 048
     Dates: start: 20091029, end: 20091101
  4. CYCLOPHOSPHAMIDE [Suspect]
     Indication: DIFFUSE LARGE B-CELL LYMPHOMA
     Dosage: 1450 MG, QAM
     Route: 042
     Dates: start: 20091029, end: 20091029
  5. GEMCITABINE HCL [Suspect]
     Indication: DIFFUSE LARGE B-CELL LYMPHOMA
     Dosage: 1463 MG, QAM
     Route: 042
     Dates: start: 20091029, end: 20091029
  6. VINCRISTINE [Suspect]
     Indication: DIFFUSE LARGE B-CELL LYMPHOMA
     Dosage: 2 MG, QAM
     Route: 042
     Dates: start: 20091029, end: 20091029
  7. TACROLIMUS [Concomitant]
     Indication: IMMUNOSUPPRESSION
     Dosage: 4 MG, BID
     Route: 048
     Dates: start: 19931204
  8. AZATHIOPRINE [Concomitant]
     Indication: IMMUNOSUPPRESSION
     Dosage: UNK
     Route: 048
     Dates: start: 19931204, end: 20091028
  9. FELODIPINE [Concomitant]
     Indication: HYPERTENSION
     Dosage: 5 MG, QAM
     Route: 048
     Dates: start: 19950101, end: 20091104
  10. LOSARTAN POTASSIUM [Concomitant]
     Indication: HYPERTENSION
     Dosage: 100 MG, QAM
     Route: 048
     Dates: start: 19950101, end: 20091104
  11. PAMIDRONATE DISODIUM [Concomitant]
     Dosage: 60 MG, UNK
     Route: 042
     Dates: start: 20091027, end: 20091027
  12. NORMAL SALINE [Concomitant]
     Indication: DRUG USE FOR UNKNOWN INDICATION
     Dosage: 1000 MG, UNK
     Route: 042
     Dates: start: 20091027, end: 20091027
  13. PIPERACILLIN AND TAZOBACTAM [Concomitant]
     Indication: SEPSIS
     Dosage: 4.5 G, UNK
     Route: 042
     Dates: start: 20091030, end: 20091109
  14. AMIKACIN [Concomitant]
     Indication: SEPSIS
     Dosage: 1200 MG, UNK
     Route: 042
     Dates: start: 20091006, end: 20091109
  15. ALLOPURINOL [Concomitant]
     Indication: DRUG USE FOR UNKNOWN INDICATION
     Dosage: 300 MG, QD
     Route: 048
     Dates: start: 20091028
  16. COTRIM [Concomitant]
     Indication: ANTIBIOTIC THERAPY
     Dosage: 480 MG, QD
     Route: 048
     Dates: start: 20091028
  17. FLUCONAZOLE [Concomitant]
     Indication: ANTIBIOTIC THERAPY
     Dosage: 100 MG, QD
     Route: 048
     Dates: start: 20091028
  18. LANSOPRAZOLE [Concomitant]
     Indication: ANTIBIOTIC THERAPY
     Dosage: 15 MG, QD
     Route: 048
     Dates: start: 20091028
  19. CORSODYL MOUTHWASH [Concomitant]
     Indication: DRUG USE FOR UNKNOWN INDICATION
     Dosage: 10 ML, UNK
     Route: 048
     Dates: start: 20091028
  20. PRAVASTATIN [Concomitant]
     Indication: DRUG USE FOR UNKNOWN INDICATION
     Dosage: 40 MG, QD
     Route: 048
  21. METOCLOPRAMIDE [Concomitant]
     Indication: DRUG USE FOR UNKNOWN INDICATION
     Dosage: 10 MG, PRN
     Route: 050
     Dates: start: 20091104

REACTIONS (3)
  - INFUSION RELATED REACTION [None]
  - LOWER RESPIRATORY TRACT INFECTION [None]
  - THROMBOSIS [None]
